FAERS Safety Report 5320817-9 (Version None)
Quarter: 2007Q2

REPORT INFORMATION
  Report Type: 
  Country: None (occurrence: None)
  Receive Date: 20070509
  Receipt Date: 20070430
  Transmission Date: 20071010
  Serious: Yes (Hospitalization)
  Sender: FDA-Public Use
  Company Number: US-GILEAD-2007-0012009

PATIENT
  Sex: Female

DRUGS (4)
  1. TRUVADA [Suspect]
     Dates: end: 20070401
  2. FUZEON [Concomitant]
     Dates: end: 20070401
  3. PREZISTA [Concomitant]
     Dates: end: 20070401
  4. NORVIR [Concomitant]
     Dates: end: 20070401

REACTIONS (2)
  - LACTIC ACIDOSIS [None]
  - PNEUMONIA [None]
